FAERS Safety Report 7807201-0 (Version None)
Quarter: 2011Q4

REPORT INFORMATION
  Report Type: 
  Country: None (occurrence: None)
  Receive Date: 20111011
  Receipt Date: 20111007
  Transmission Date: 20120403
  Serious: Yes (Death, Hospitalization, Other)
  Sender: FDA-Public Use
  Company Number: PHHO2010GB08837

PATIENT
  Sex: Female

DRUGS (19)
  1. AMILORIDE HYDROCHLORIDE [Concomitant]
  2. ITRACONAZOLE [Concomitant]
  3. VORICONAZOLE [Concomitant]
  4. PROCHLORPERAZINE [Concomitant]
  5. EVEROLIMUS [Suspect]
     Dosage: UNK
     Dates: start: 20100525, end: 20100609
  6. CYTARABINE [Suspect]
     Indication: ACUTE MYELOID LEUKAEMIA
     Dosage: UNK
     Dates: start: 20100519, end: 20100523
  7. ZOPICLON [Concomitant]
  8. EVEROLIMUS [Suspect]
     Indication: ACUTE MYELOID LEUKAEMIA
     Dosage: UNK
     Route: 048
     Dates: start: 20100519, end: 20100523
  9. ACYCLOVIR [Concomitant]
  10. MEROPENEM [Concomitant]
  11. PHOSPHATE-SANDOZ [Concomitant]
  12. ONDANSETRON [Concomitant]
  13. NOZINAN [Concomitant]
  14. POTASSIUM CHLORIDE [Concomitant]
  15. LOPERAMIDE HCL [Concomitant]
  16. DAUNORUBICIN HCL [Concomitant]
  17. ETOPOSIDE [Concomitant]
  18. VANCOMYCIN [Concomitant]
  19. CYCLIZINE [Concomitant]

REACTIONS (4)
  - LEUKAEMIA RECURRENT [None]
  - DRUG INTERACTION [None]
  - HYPOPHOSPHATAEMIA [None]
  - FUNGAL INFECTION [None]
